FAERS Safety Report 6200591-4 (Version None)
Quarter: 2009Q2

REPORT INFORMATION
  Report Type: 
  Country: None (occurrence: None)
  Receive Date: 20090522
  Receipt Date: 20090513
  Transmission Date: 20091009
  Serious: Yes (Death, Hospitalization, Other)
  Sender: FDA-Public Use
  Company Number: AT-ABBOTT-07P-009-0428326-00

PATIENT
  Sex: Male

DRUGS (5)
  1. TRENANTONE [Suspect]
     Indication: NEOPLASM PROSTATE
     Route: 058
  2. BISOPROLOL [Concomitant]
     Indication: HYPERTENSION
     Route: 048
  3. MARCUMAR [Concomitant]
     Indication: DRUG USE FOR UNKNOWN INDICATION
     Route: 048
  4. DEFLAMAT [Concomitant]
     Indication: PAIN
     Route: 048
  5. ZOMETA [Concomitant]
     Indication: DRUG USE FOR UNKNOWN INDICATION
     Route: 042

REACTIONS (2)
  - CUSHING'S SYNDROME [None]
  - PANCREATIC NEUROENDOCRINE TUMOUR METASTATIC [None]
